FAERS Safety Report 24712339 (Version 5)
Quarter: 2025Q2

REPORT INFORMATION
  Report Type: Spontaneous
  Country: US (occurrence: US)
  Receive Date: 20241209
  Receipt Date: 20250512
  Transmission Date: 20250716
  Serious: Yes (Hospitalization, Other)
  Sender: BRISTOL-MYERS SQUIBB COMPANY
  Company Number: US-BRISTOL-MYERS SQUIBB COMPANY-2024-191119

PATIENT
  Age: 79 Year
  Sex: Female

DRUGS (2)
  1. LENALIDOMIDE [Suspect]
     Active Substance: LENALIDOMIDE
     Indication: Iron deficiency
     Route: 048
     Dates: start: 20241205
  2. LENALIDOMIDE [Suspect]
     Active Substance: LENALIDOMIDE
     Indication: Pulmonary mass
     Dosage: TAKE 1 CAPSULE BY MOUTH EVERY DAY FOR 21 ?DAYS ON THEN 7 DAYS OFF
     Route: 048

REACTIONS (20)
  - Sinusitis [Not Recovered/Not Resolved]
  - Headache [Not Recovered/Not Resolved]
  - Epistaxis [Not Recovered/Not Resolved]
  - Off label use [Unknown]
  - Dizziness [Not Recovered/Not Resolved]
  - Malaise [Not Recovered/Not Resolved]
  - Hyperglycaemia [Recovering/Resolving]
  - Feeling jittery [Recovering/Resolving]
  - Speech disorder [Recovering/Resolving]
  - Cerebrovascular accident [Recovering/Resolving]
  - Foot fracture [Recovering/Resolving]
  - Localised infection [Recovering/Resolving]
  - Confusional state [Unknown]
  - Psoriasis [Unknown]
  - Fatigue [Unknown]
  - Psoriatic arthropathy [Unknown]
  - Nausea [Not Recovered/Not Resolved]
  - Tremor [Unknown]
  - Nervousness [Unknown]
  - Atrial fibrillation [Unknown]
